FAERS Safety Report 21456178 (Version 1)
Quarter: 2022Q4

REPORT INFORMATION
  Report Type: Spontaneous
  Country: US (occurrence: US)
  Receive Date: 20221014
  Receipt Date: 20221014
  Transmission Date: 20230112
  Serious: Yes (Other)
  Sender: FDA-Public Use
  Company Number: US-AMGEN-USASP2022175358

PATIENT
  Age: 40 Year
  Sex: Female

DRUGS (1)
  1. ERENUMAB [Suspect]
     Active Substance: ERENUMAB
     Indication: Migraine prophylaxis
     Dosage: UNK
     Route: 065

REACTIONS (2)
  - Urticaria [Recovered/Resolved]
  - Rash papulosquamous [Recovered/Resolved]
